FAERS Safety Report 10161486 (Version 2)
Quarter: 2014Q2

REPORT INFORMATION
  Report Type: Spontaneous
  Country: CA (occurrence: CA)
  Receive Date: 20140509
  Receipt Date: 20140509
  Transmission Date: 20141212
  Serious: Yes (Disabling, Other)
  Sender: FDA-Public Use
  Company Number: CA-009507513-1403CAN001220

PATIENT
  Age: 60 Year
  Sex: Male
  Weight: 84.35 kg

DRUGS (4)
  1. PROSCAR [Suspect]
     Indication: BENIGN PROSTATIC HYPERPLASIA
     Dosage: 5 MG, QD
     Route: 048
     Dates: start: 200907, end: 2014
  2. FLOMAX (TAMSULOSIN HYDROCHLORIDE) [Concomitant]
     Dosage: DOSE FORM 0.4 (UNITS NOT SPECIFIED)
  3. COVERSYL (PERINDOPRIL ARGININE) [Concomitant]
     Dosage: DOSE FORM 4 (UNITS NOT SPECIFIED), QD
  4. LIPITOR [Concomitant]
     Dosage: DOSE FORM 20 UNITS NOT REPORTED, QD
     Dates: start: 200805

REACTIONS (4)
  - Surgery [Unknown]
  - Surgery [Unknown]
  - Breast cancer male [Unknown]
  - Breast mass [Unknown]
